FAERS Safety Report 9356409 (Version 2)
Quarter: 2013Q4

REPORT INFORMATION
  Report Type: Spontaneous
  Country: US (occurrence: US)
  Receive Date: 20130619
  Receipt Date: 20131223
  Transmission Date: 20140711
  Serious: Yes (Death)
  Sender: FDA-Public Use
  Company Number: US-B.I. PHARMACEUTICALS,INC./RIDGEFIELD-2013-BI-16852BP

PATIENT
  Sex: Male
  Weight: 45.36 kg

DRUGS (4)
  1. PRADAXA [Suspect]
     Indication: ANTICOAGULANT THERAPY
     Dates: start: 20110916, end: 20111222
  2. PRADAXA [Suspect]
     Indication: ATRIAL FIBRILLATION
  3. DILTIAZEM [Concomitant]
  4. FISH OIL [Concomitant]

REACTIONS (6)
  - Hypovolaemic shock [Fatal]
  - Haemorrhage [Fatal]
  - Coagulopathy [Fatal]
  - Hypoxia [Fatal]
  - Respiratory failure [Fatal]
  - Cardio-respiratory arrest [Fatal]
